FAERS Safety Report 14011255 (Version 12)
Quarter: 2019Q1

REPORT INFORMATION
  Report Type: Report from Study
  Country: DE (occurrence: DE)
  Receive Date: 20170926
  Receipt Date: 20190321
  Transmission Date: 20190417
  Serious: Yes (Death, Hospitalization, Other)
  Sender: FDA-Public Use
  Company Number: DE-BRISTOL-MYERS SQUIBB COMPANY-BMS-2017-074923

PATIENT
  Age: 56 Year
  Sex: Female

DRUGS (4)
  1. NIVOLUMAB [Suspect]
     Active Substance: NIVOLUMAB
     Indication: MALIGNANT MELANOMA
     Dosage: 121.0 MG, Q3WK
     Route: 042
     Dates: start: 20170727, end: 20170905
  2. IPILIMUMAB [Suspect]
     Active Substance: IPILIMUMAB
     Indication: PRODUCT USED FOR UNKNOWN INDICATION
     Dosage: 363 ABSENT
     Route: 042
     Dates: start: 20170727, end: 20170905
  3. IPILIMUMAB [Suspect]
     Active Substance: IPILIMUMAB
     Indication: MALIGNANT MELANOMA
     Dosage: 363 MG, Q3WK
     Route: 042
     Dates: start: 20170727, end: 20170905
  4. NIVOLUMAB [Suspect]
     Active Substance: NIVOLUMAB
     Indication: PRODUCT USED FOR UNKNOWN INDICATION
     Dosage: 121.0 MG I.V
     Route: 065

REACTIONS (14)
  - Idiopathic intracranial hypertension [Fatal]
  - Metastases to central nervous system [Fatal]
  - Colitis [Recovered/Resolved]
  - Malignant neoplasm progression [Not Recovered/Not Resolved]
  - Paraesthesia [Not Recovered/Not Resolved]
  - Monoparesis [Unknown]
  - Nausea [Not Recovered/Not Resolved]
  - Angiopathy [Fatal]
  - Campylobacter infection [Unknown]
  - Facial paresis [Unknown]
  - Hepatic pain [Not Recovered/Not Resolved]
  - Decreased appetite [Unknown]
  - Enteritis [Unknown]
  - Metastases to central nervous system [Unknown]

NARRATIVE: CASE EVENT DATE: 20170809
